FAERS Safety Report 5754876-6 (Version None)
Quarter: 2008Q2

REPORT INFORMATION
  Report Type: 
  Country: None (occurrence: None)
  Receive Date: 20080527
  Receipt Date: 20080507
  Transmission Date: 20081010
  Serious: Yes (Hospitalization)
  Sender: FDA-Public Use
  Company Number: 2008AL003800

PATIENT
  Age: 78 Year
  Sex: Female
  Weight: 45.3597 kg

DRUGS (13)
  1. DIGOXIN [Suspect]
     Indication: CARDIAC DISORDER
     Dosage: 0.125MG DAILY PO
     Route: 048
  2. ANTIBIOTICS [Concomitant]
  3. RAMIPRIL [Concomitant]
  4. PREDNISONE TAB [Concomitant]
  5. LEVOTHYROXINE SODIUM [Concomitant]
  6. TRACLEER [Concomitant]
  7. WARFARIN SODIUM [Concomitant]
  8. ALBUTEROL [Concomitant]
  9. OXYGEN MASK [Concomitant]
  10. LIPITOR [Concomitant]
  11. LASIX [Concomitant]
  12. SPIRONOLACTONE [Concomitant]
  13. VICODIN [Concomitant]

REACTIONS (5)
  - CONSTIPATION [None]
  - DIARRHOEA [None]
  - FEELING ABNORMAL [None]
  - RENAL IMPAIRMENT [None]
  - THERAPEUTIC AGENT TOXICITY [None]
